FAERS Safety Report 6695194-1 (Version None)
Quarter: 2010Q2

REPORT INFORMATION
  Report Type: 
  Country: None (occurrence: None)
  Receive Date: 20100423
  Receipt Date: 20100413
  Transmission Date: 20101027
  Serious: Yes (Hospitalization)
  Sender: FDA-Public Use
  Company Number: US-WATSON-2010-05031

PATIENT
  Age: 66 Year
  Sex: Female

DRUGS (3)
  1. CLONIDINE [Suspect]
     Indication: HYPERTENSION
     Dosage: 0.1 TO 0.2 MG, TID
     Route: 048
  2. DULOXETINE HYDROCHLORIDE [Suspect]
     Indication: DRUG USE FOR UNKNOWN INDICATION
     Dosage: 60 MG, DAILY
     Route: 048
  3. ATORVASTATIN [Suspect]
     Indication: DRUG USE FOR UNKNOWN INDICATION
     Dosage: 80 MG, DAILY
     Route: 048

REACTIONS (2)
  - DRUG INTERACTION [None]
  - PYREXIA [None]
